FAERS Safety Report 8097508-7 (Version None)
Quarter: 2012Q1

REPORT INFORMATION
  Report Type: 
  Country: None (occurrence: None)
  Receive Date: 20120131
  Receipt Date: 20120120
  Transmission Date: 20120608
  Serious: Yes (Hospitalization, Other)
  Sender: FDA-Public Use
  Company Number: US-BAYER-201038179NA

PATIENT
  Age: 21 Year
  Sex: Female
  Weight: 55.782 kg

DRUGS (9)
  1. LEXAPRO [Concomitant]
     Dosage: 10 MG, UNK
     Route: 048
     Dates: start: 20060403, end: 20061004
  2. YAZ [Suspect]
     Indication: PRODUCT USED FOR UNKNOWN INDICATION
  3. ASPIRIN [Concomitant]
     Dosage: 325 MG, QD
     Dates: start: 20061120
  4. COUMADIN [Concomitant]
     Dosage: 6 MG, QD
     Dates: end: 20061120
  5. COUMADIN [Concomitant]
     Dosage: 8 MG, QD
     Dates: end: 20061120
  6. YASMIN [Suspect]
     Indication: CONTRACEPTION
     Dosage: UNK
     Dates: start: 20010101, end: 20060101
  7. DILAUDID [Concomitant]
     Indication: PAIN
     Dosage: UNK
     Dates: start: 20060508
  8. ORTHO TRI-CYCLEN [Concomitant]
     Dosage: UNK
     Dates: start: 20010701, end: 20020310
  9. LOVENOX [Concomitant]

REACTIONS (5)
  - PULMONARY EMBOLISM [None]
  - SYNCOPE [None]
  - CHEST PAIN [None]
  - DYSPNOEA [None]
  - PAIN [None]
